FAERS Safety Report 10041609 (Version 2)
Quarter: 2014Q2

REPORT INFORMATION
  Report Type: Spontaneous
  Country: BE (occurrence: None)
  Receive Date: 20140325
  Receipt Date: 20140602
  Transmission Date: 20141212
  Serious: Yes (Life-Threatening)
  Sender: FDA-Public Use
  Company Number: BE-20140014

PATIENT
  Age: 32 Year
  Sex: Female

DRUGS (1)
  1. DOTAREM (GATODERIC ACID), [Suspect]
     Indication: NUCLEAR MAGNETIC RESONANCE IMAGING
     Dosage: 20 MG, 1 IN 1 D), INTRAVENOUS (NOT OTHERWISE SPECIFIED)?
     Route: 042
     Dates: start: 20140313, end: 20140313

REACTIONS (6)
  - Angioedema [None]
  - Vision blurred [None]
  - Blood pressure decreased [None]
  - Papule [None]
  - Dry throat [None]
  - Pharyngeal oedema [None]
